FAERS Safety Report 15231204 (Version 5)
Quarter: 2018Q3

REPORT INFORMATION
  Report Type: Spontaneous
  Country: FR (occurrence: FR)
  Receive Date: 20180802
  Receipt Date: 20180911
  Transmission Date: 20181010
  Serious: Yes (Other)
  Sender: FDA-Public Use
  Company Number: PHHY2018FR058662

PATIENT
  Age: 50 Year
  Sex: Female

DRUGS (8)
  1. OFLOXACINE [Suspect]
     Active Substance: OFLOXACIN
     Indication: SEASONAL ALLERGY
     Dosage: 200 MG, UNK
     Route: 048
     Dates: start: 20121201, end: 20121201
  2. CEFPODOXIME [Concomitant]
     Active Substance: CEFPODOXIME
     Indication: PRODUCT USED FOR UNKNOWN INDICATION
     Dosage: UNK
     Route: 065
  3. ORELOX [Concomitant]
     Active Substance: CEFPODOXIME
     Indication: SEASONAL ALLERGY
  4. OFLOXACINE [Suspect]
     Active Substance: OFLOXACIN
     Indication: EAR INFECTION
  5. ORELOX [Concomitant]
     Active Substance: CEFPODOXIME
     Indication: RASH GENERALISED
  6. ORELOX [Concomitant]
     Active Substance: CEFPODOXIME
     Indication: EAR INFECTION
     Dosage: 100 MG, UNK
     Route: 065
  7. ORELOX [Concomitant]
     Active Substance: CEFPODOXIME
     Indication: RASH GENERALISED
  8. OFLOXACINE [Suspect]
     Active Substance: OFLOXACIN
     Indication: RASH GENERALISED

REACTIONS (9)
  - Eczema [Recovered/Resolved]
  - Rash [Recovered/Resolved]
  - Type IV hypersensitivity reaction [Recovered/Resolved]
  - Drug eruption [Recovered/Resolved]
  - Urticaria [Recovered/Resolved]
  - Type I hypersensitivity [Recovered/Resolved]
  - Erythema [Unknown]
  - Papule [Unknown]
  - Hypersensitivity [Recovered/Resolved]

NARRATIVE: CASE EVENT DATE: 20120214
